FAERS Safety Report 9544258 (Version 2)
Quarter: 2013Q3

REPORT INFORMATION
  Report Type: Spontaneous
  Country: US (occurrence: US)
  Receive Date: 20130923
  Receipt Date: 20130923
  Transmission Date: 20140515
  Serious: No
  Sender: FDA-Public Use
  Company Number: US-ASTRAZENECA-2013SE49980

PATIENT
  Age: 49 Year
  Sex: Female

DRUGS (6)
  1. CRESTOR [Suspect]
     Indication: MYOCARDIAL INFARCTION
     Route: 048
     Dates: start: 20120506
  2. CRESTOR [Suspect]
     Indication: MYOCARDIAL INFARCTION
     Route: 048
     Dates: start: 201306
  3. BRILINTA [Suspect]
     Indication: ISCHAEMIC HEART DISEASE PROPHYLAXIS
     Route: 048
     Dates: start: 20120506
  4. LISINOPRIL [Suspect]
     Route: 065
     Dates: start: 20120506
  5. METOPROLOL ER WATSO [Suspect]
     Route: 065
     Dates: start: 20120506
  6. ASPIRIN [Concomitant]
     Dates: start: 20130506

REACTIONS (26)
  - Sleep disorder due to a general medical condition [Not Recovered/Not Resolved]
  - Weight loss poor [Not Recovered/Not Resolved]
  - Stress [Not Recovered/Not Resolved]
  - Vomiting [Recovered/Resolved]
  - Pain [Not Recovered/Not Resolved]
  - Temperature intolerance [Not Recovered/Not Resolved]
  - Back pain [Not Recovered/Not Resolved]
  - Weight increased [Not Recovered/Not Resolved]
  - Arthritis [Not Recovered/Not Resolved]
  - Anxiety [Not Recovered/Not Resolved]
  - Pain in extremity [Not Recovered/Not Resolved]
  - Dysgeusia [Not Recovered/Not Resolved]
  - Dyspnoea [Not Recovered/Not Resolved]
  - Boredom [Not Recovered/Not Resolved]
  - Insomnia [Not Recovered/Not Resolved]
  - Dyspepsia [Not Recovered/Not Resolved]
  - Fatigue [Not Recovered/Not Resolved]
  - Arthralgia [Not Recovered/Not Resolved]
  - Food intolerance [Recovering/Resolving]
  - Muscle spasms [Unknown]
  - Lymphadenopathy [Unknown]
  - Blood cholesterol increased [Unknown]
  - Abdominal discomfort [Not Recovered/Not Resolved]
  - Intentional drug misuse [Not Recovered/Not Resolved]
  - Circumstance or information capable of leading to medication error [Not Recovered/Not Resolved]
  - Drug dose omission [Unknown]
